FAERS Safety Report 24809603 (Version 7)
Quarter: 2025Q1

REPORT INFORMATION
  Report Type: Report from Study
  Country: CA (occurrence: CA)
  Receive Date: 20250106
  Receipt Date: 20250311
  Transmission Date: 20250409
  Serious: Yes (Other)
  Sender: UCB
  Company Number: CA-UCBSA-2024063778

PATIENT
  Sex: Female

DRUGS (8)
  1. CERTOLIZUMAB PEGOL [Suspect]
     Active Substance: CERTOLIZUMAB PEGOL
     Indication: Ankylosing spondylitis
     Dosage: 400 MILLIGRAM, EV 2 WEEKS(QOW)
     Route: 058
     Dates: start: 20241120, end: 20241218
  2. CERTOLIZUMAB PEGOL [Suspect]
     Active Substance: CERTOLIZUMAB PEGOL
     Dosage: 200 MILLIGRAM, EV 2 WEEKS(QOW)
     Route: 058
     Dates: start: 20250101, end: 2025
  3. PREDNISONE [Suspect]
     Active Substance: PREDNISONE
     Indication: Gait disturbance
     Dates: start: 2024
  4. PREDNISONE [Suspect]
     Active Substance: PREDNISONE
     Indication: Swelling
  5. PREDNISONE [Suspect]
     Active Substance: PREDNISONE
     Indication: Ankylosing spondylitis
  6. SULFASALAZINE [Suspect]
     Active Substance: SULFASALAZINE
     Indication: Product used for unknown indication
     Dates: start: 20250214, end: 20250225
  7. SYNTHROID [Concomitant]
     Active Substance: LEVOTHYROXINE SODIUM
     Indication: Product used for unknown indication
  8. ADVIL [Concomitant]
     Active Substance: IBUPROFEN
     Indication: Ankylosing spondylitis

REACTIONS (18)
  - Ankylosing spondylitis [Not Recovered/Not Resolved]
  - Injection site erythema [Recovered/Resolved]
  - Fungal infection [Recovering/Resolving]
  - Cough [Unknown]
  - Fatigue [Unknown]
  - Influenza like illness [Unknown]
  - Skin reaction [Recovered/Resolved]
  - Pruritus [Recovered/Resolved]
  - Gait disturbance [Unknown]
  - Swelling [Unknown]
  - Blood glucose increased [Not Recovered/Not Resolved]
  - Hypersensitivity [Not Recovered/Not Resolved]
  - Migraine [Recovered/Resolved]
  - Pyrexia [Recovered/Resolved]
  - Erythema [Recovered/Resolved]
  - Swelling face [Recovered/Resolved]
  - Inappropriate schedule of product administration [Unknown]
  - Drug ineffective [Unknown]

NARRATIVE: CASE EVENT DATE: 20240101
